FAERS Safety Report 18797376 (Version 1)
Quarter: 2021Q1

REPORT INFORMATION
  Report Type: Spontaneous
  Country: US (occurrence: US)
  Receive Date: 20210128
  Receipt Date: 20210128
  Transmission Date: 20210419
  Serious: No
  Sender: FDA-Public Use
  Company Number: US-AUROBINDO-AUR-APL-2020-047795

PATIENT
  Age: 17 Year
  Sex: Female
  Weight: 89.81 kg

DRUGS (2)
  1. ECONTRA ONE?STEP [Suspect]
     Active Substance: LEVONORGESTREL
     Indication: CONTRACEPTION
     Dosage: 1 DOSAGE FORM
     Route: 065
     Dates: start: 20200906
  2. ECONTRA ONE?STEP [Suspect]
     Active Substance: LEVONORGESTREL
     Dosage: 1 DOSAGE FORM
     Route: 065
     Dates: start: 20200907

REACTIONS (1)
  - Extra dose administered [Unknown]
